FAERS Safety Report 4492900-1 (Version None)
Quarter: 2004Q4

REPORT INFORMATION
  Report Type: 
  Country: None (occurrence: None)
  Receive Date: 20041104
  Receipt Date: 20041102
  Transmission Date: 20050328
  Serious: Yes (Hospitalization)
  Sender: FDA-Public Use
  Company Number: FR-MERCK-0411FRA00005

PATIENT
  Age: 48 Year
  Sex: Female

DRUGS (3)
  1. INDOCIN [Suspect]
     Indication: JUVENILE ARTHRITIS
     Route: 048
     Dates: start: 20040904, end: 20040913
  2. ACETAMINOPHEN [Suspect]
     Indication: ARTHRALGIA
     Route: 048
     Dates: start: 20040904, end: 20040913
  3. OMEPRAZOLE [Suspect]
     Indication: PROPHYLAXIS AGAINST GASTROINTESTINAL ULCER
     Route: 048
     Dates: start: 20040904, end: 20040913

REACTIONS (3)
  - CHOLESTASIS [None]
  - HEPATIC ENZYME INCREASED [None]
  - THROMBOCYTOPENIA [None]
